FAERS Safety Report 4690880-7 (Version None)
Quarter: 2005Q2

REPORT INFORMATION
  Report Type: 
  Country: None (occurrence: None)
  Receive Date: 20050614
  Receipt Date: 20050614
  Transmission Date: 20051028
  Serious: Yes (Other)
  Sender: FDA-Public Use
  Company Number: None

PATIENT
  Sex: Female

DRUGS (2)
  1. SERZONE [Suspect]
     Indication: DEPRESSION
     Dosage: 100 BID PO
     Route: 048
     Dates: start: 19980101
  2. PAXIL [Suspect]
     Indication: GENERALISED ANXIETY DISORDER
     Dosage: 20 MGM QD
     Route: 048
     Dates: start: 19970101

REACTIONS (2)
  - FATIGUE [None]
  - IRRITABILITY [None]
